FAERS Safety Report 6749046-9 (Version None)
Quarter: 2010Q2

REPORT INFORMATION
  Report Type: 
  Country: None (occurrence: None)
  Receive Date: 20100601
  Receipt Date: 20100317
  Transmission Date: 20101027
  Serious: No
  Sender: FDA-Public Use
  Company Number: CA-SANOFI-AVENTIS-2010SA016077

PATIENT
  Age: 44 Year
  Sex: Female

DRUGS (1)
  1. CYCLOMEN [Suspect]
     Indication: ENDOMETRIOSIS
     Route: 048
     Dates: start: 20090301

REACTIONS (3)
  - AFFECT LABILITY [None]
  - AGGRESSION [None]
  - DEPRESSION [None]
